FAERS Safety Report 6531172-0 (Version None)
Quarter: 2010Q1

REPORT INFORMATION
  Report Type: 
  Country: None (occurrence: None)
  Receive Date: 20100108
  Receipt Date: 20091231
  Transmission Date: 20100710
  Serious: Yes (Hospitalization, Other)
  Sender: FDA-Public Use
  Company Number: US-ROCHE-674975

PATIENT
  Age: 77 Year
  Sex: Female
  Weight: 70.8 kg

DRUGS (16)
  1. XELODA [Suspect]
     Dosage: RECEIVED ON DAY 1 AND 14.
     Route: 048
     Dates: start: 20091124, end: 20091202
  2. GEMZAR [Suspect]
     Dosage: RECEIVED ON DAY 1 AND 8
     Route: 042
     Dates: start: 20091124, end: 20091202
  3. LOVENOX [Concomitant]
  4. OXYCONTIN [Concomitant]
  5. COMPAZINE [Concomitant]
     Dosage: TAKEN AS NEEDED.
  6. ASPIRIN [Concomitant]
  7. COUMADIN [Concomitant]
     Dosage: TAKEN 4 MG ON MON, WED, FRI AND 3 MG ON TUES, THURS, SAT, SUN.
     Route: 048
  8. DIGOXIN [Concomitant]
  9. ISOSORBIDE [Concomitant]
  10. LISINOPRIL [Concomitant]
  11. LOPRESSOR [Concomitant]
  12. FISH OIL [Concomitant]
     Dosage: TAKEN DAILY.
     Route: 048
  13. MS CONTIN [Concomitant]
  14. OXYCODONE [Concomitant]
     Indication: PAIN
     Dosage: TAKEN AS NEEDED.
  15. ZOFRAN [Concomitant]
     Route: 048
  16. CIPRO [Concomitant]
     Dosage: RECEIVED FOR THREE DAYS.
     Route: 048

REACTIONS (6)
  - ABDOMINAL ADHESIONS [None]
  - ABDOMINAL PAIN [None]
  - LEUKOCYTOSIS [None]
  - PNEUMATOSIS INTESTINALIS [None]
  - PYREXIA [None]
  - TENDERNESS [None]
